FAERS Safety Report 5303643-6 (Version None)
Quarter: 2007Q2

REPORT INFORMATION
  Report Type: 
  Country: None (occurrence: None)
  Receive Date: 20070420
  Receipt Date: 20070412
  Transmission Date: 20071010
  Serious: Yes (Other)
  Sender: FDA-Public Use
  Company Number: US-ABBOTT-07P-163-0363420-00

PATIENT
  Age: 53 Year
  Sex: Female

DRUGS (1)
  1. DILAUDID [Suspect]
     Indication: MYALGIA
     Route: 030
     Dates: start: 20070101, end: 20070101

REACTIONS (1)
  - RESPIRATORY FAILURE [None]
